FAERS Safety Report 20381100 (Version 1)
Quarter: 2022Q1

REPORT INFORMATION
  Report Type: Spontaneous
  Country: IT (occurrence: IT)
  Receive Date: 20220127
  Receipt Date: 20220127
  Transmission Date: 20220424
  Serious: Yes (Other)
  Sender: FDA-Public Use
  Company Number: IT-TEVA-2022-IT-2000984

PATIENT
  Age: 4 Month
  Sex: Male

DRUGS (4)
  1. CARBOPLATIN [Suspect]
     Active Substance: CARBOPLATIN
     Indication: Astrocytoma, low grade
     Dosage: RECEIVED 1 CYCLE WITH ETOPOSIDE AND 2 DOSES IN SIOP LGG-2004 PROTOCOL; TOTAL CUMULATIVE DOSE: 36....
     Route: 065
  2. ETOPOSIDE [Suspect]
     Active Substance: ETOPOSIDE
     Indication: Astrocytoma, low grade
     Dosage: RECEIVED 1 CYCLE WITH CARBOPLATIN
     Route: 065
  3. VINCRISTINE [Suspect]
     Active Substance: VINCRISTINE
     Indication: Astrocytoma, low grade
     Dosage: RECEIVED 2 DOSES IN SIOP LGG-2004 PROTOCOL
     Route: 065
  4. DESMOPRESSIN [Concomitant]
     Active Substance: DESMOPRESSIN
     Indication: Diabetes insipidus
     Route: 065

REACTIONS (2)
  - Haematotoxicity [Unknown]
  - Ileus paralytic [Unknown]
